FAERS Safety Report 16662037 (Version 1)
Quarter: 2019Q3

REPORT INFORMATION
  Report Type: Spontaneous
  Country: US (occurrence: US)
  Receive Date: 20190802
  Receipt Date: 20190802
  Transmission Date: 20191004
  Serious: No
  Sender: FDA-Public Use
  Company Number: None

PATIENT
  Age: 36 Year
  Sex: Female

DRUGS (6)
  1. PRENATAL+DHA WOMENS [Concomitant]
     Dates: start: 20180917
  2. FOLLISTIM [Concomitant]
     Active Substance: FOLLITROPIN
     Dates: start: 20180321
  3. GANIRELIX [Concomitant]
     Active Substance: GANIRELIX
     Dates: start: 20190219
  4. LEUPROLIDE [Suspect]
     Active Substance: LEUPROLIDE
     Route: 058
     Dates: start: 20190206
  5. SINGULAIR [Concomitant]
     Active Substance: MONTELUKAST SODIUM
     Dates: start: 20190204
  6. SYMBICORT [Concomitant]
     Active Substance: BUDESONIDE\FORMOTEROL FUMARATE DIHYDRATE
     Dates: start: 20180917

REACTIONS (1)
  - Injection site reaction [None]

NARRATIVE: CASE EVENT DATE: 20190424
